FAERS Safety Report 14085740 (Version 2)
Quarter: 2017Q4

REPORT INFORMATION
  Report Type: Spontaneous
  Country: JP (occurrence: JP)
  Receive Date: 20171013
  Receipt Date: 20171204
  Transmission Date: 20180321
  Serious: Yes (Hospitalization, Other)
  Sender: FDA-Public Use
  Company Number: JP-TEVA-2017-JP-003420J

PATIENT
  Age: 37 Year
  Sex: Female

DRUGS (2)
  1. PENTAZOCINE HYDROCHLORIDE [Suspect]
     Active Substance: PENTAZOCINE HYDROCHLORIDE
     Indication: STIFF PERSON SYNDROME
     Dosage: 30 MILLIGRAM DAILY;
     Route: 042
  2. CERCINE [Suspect]
     Active Substance: DIAZEPAM
     Indication: STIFF PERSON SYNDROME
     Dosage: 40 MILLIGRAM DAILY;
     Route: 042

REACTIONS (2)
  - Skin necrosis [Recovering/Resolving]
  - Administration site extravasation [Recovering/Resolving]
